FAERS Safety Report 7073937-5 (Version None)
Quarter: 2010Q4

REPORT INFORMATION
  Report Type: 
  Country: None (occurrence: None)
  Receive Date: 20101029
  Receipt Date: 20100812
  Transmission Date: 20110411
  Serious: Yes (Hospitalization, Other)
  Sender: FDA-Public Use
  Company Number: PHHY2010GB54301

PATIENT
  Age: 35 Year
  Sex: Male

DRUGS (12)
  1. VALDOXAN [Suspect]
     Dosage: 25 MG, QD
     Route: 048
  2. DICLOFENAC SODIUM [Suspect]
     Dosage: 50 MG, TID
  3. ALCOHOL [Suspect]
     Dosage: UNK
  4. AMFETAMINE [Suspect]
     Dosage: UNK
  5. COCAINE [Suspect]
     Dosage: UNK
  6. LANSOPRAZOLE [Suspect]
     Dosage: 30 MG, BID
  7. METHADONE [Suspect]
     Dosage: 80 MG, QD
  8. RISPERDAL CONSTA [Suspect]
     Indication: SCHIZOPHRENIA
     Dosage: 50 MG, ONCE EVERY 2 WEEKS
     Route: 030
     Dates: start: 20100617, end: 20100707
  9. RISPERDAL CONSTA [Suspect]
     Dosage: 50 MG, ONCE EVERY 2 WEEKS
     Dates: start: 20100714
  10. RISPERIDONE [Suspect]
     Dosage: 2 MG, QD
     Route: 048
  11. TETRABENAZINE [Suspect]
     Dosage: 12.5 MG, QD
  12. ZOPICLONE [Suspect]
     Dosage: 7.5 MG, QD

REACTIONS (2)
  - ELECTROCARDIOGRAM ABNORMAL [None]
  - MULTIPLE DRUG OVERDOSE INTENTIONAL [None]
